FAERS Safety Report 5965309-9 (Version None)
Quarter: 2008Q4

REPORT INFORMATION
  Report Type: 
  Country: None (occurrence: None)
  Receive Date: 20081122
  Receipt Date: 20081122
  Transmission Date: 20090506
  Serious: Yes (Hospitalization)
  Sender: FDA-Public Use
  Company Number: None

PATIENT
  Age: 36 Year
  Sex: Female

DRUGS (1)
  1. ETHINYL ESTRADIOL/ETONOGESTREL [Suspect]
     Indication: MENSTRUATION IRREGULAR
     Dates: start: 20070424, end: 20071128

REACTIONS (6)
  - ANGINA PECTORIS [None]
  - CARDIOLIPIN ANTIBODY POSITIVE [None]
  - FIBRIN D DIMER INCREASED [None]
  - PALPITATIONS [None]
  - PULMONARY EMBOLISM [None]
  - SINUS TACHYCARDIA [None]
